FAERS Safety Report 8529070-6 (Version None)
Quarter: 2012Q3

REPORT INFORMATION
  Report Type: 
  Country: None (occurrence: None)
  Receive Date: 20120716
  Receipt Date: 20120716
  Transmission Date: 20120928
  Serious: No
  Sender: FDA-Public Use
  Company Number: None

PATIENT
  Sex: Female
  Weight: 73.9363 kg

DRUGS (2)
  1. SAVELLA [Suspect]
     Indication: FIBROMYALGIA
     Dosage: 25 MG 2X DAILY; 12-5-11 STARTER KIT TO 1-5-12
     Dates: start: 20111205, end: 20120105
  2. SAVELLA [Suspect]
     Indication: FIBROMYALGIA
     Dosage: 25 MG 2X DAILY; 12-5-11 STARTER KIT TO 1-5-12
     Dates: start: 20120107

REACTIONS (2)
  - VISION BLURRED [None]
  - MYDRIASIS [None]
